FAERS Safety Report 13735743 (Version 1)
Quarter: 2017Q3

REPORT INFORMATION
  Report Type: Spontaneous
  Country: US (occurrence: US)
  Receive Date: 20170710
  Receipt Date: 20170710
  Transmission Date: 20171127
  Serious: Yes (Other)
  Sender: FDA-Public Use
  Company Number: US-AUROBINDO-AUR-APL-2017-36655

PATIENT
  Age: 39 Year
  Sex: Male

DRUGS (1)
  1. TELMISARTAN+HYDROCHLOROTHIAZIDE 80MG/12.5MG [Suspect]
     Active Substance: HYDROCHLOROTHIAZIDE\TELMISARTAN
     Indication: HYPERTENSION
     Dosage: UNK
     Route: 065

REACTIONS (1)
  - Lichen planus [Recovering/Resolving]
